FAERS Safety Report 10674171 (Version 2)
Quarter: 2015Q1

REPORT INFORMATION
  Report Type: Spontaneous
  Country: BR (occurrence: BR)
  Receive Date: 20141224
  Receipt Date: 20150122
  Transmission Date: 20150720
  Serious: Yes (Hospitalization, Other)
  Sender: FDA-Public Use
  Company Number: BR-PFIZER INC-2014354206

PATIENT
  Sex: Male
  Weight: 104 kg

DRUGS (5)
  1. DOSTINEX [Suspect]
     Active Substance: CABERGOLINE
     Indication: BLOOD PROLACTIN ABNORMAL
     Dosage: 2 TABLETS/WEEK
     Route: 048
  2. ENALAPRIL MALEATE. [Concomitant]
     Active Substance: ENALAPRIL MALEATE
     Indication: BLOOD PRESSURE ABNORMAL
     Dosage: 20 MG (1 TABLET), 2X/DAY
     Route: 048
     Dates: start: 1995
  3. DOSTINEX [Suspect]
     Active Substance: CABERGOLINE
     Indication: NEOPLASM MALIGNANT
     Dosage: 0.5 MG (1 TABLET), WEEKLY
     Route: 048
     Dates: start: 2003
  4. AMLODIPINE BESILATE [Concomitant]
     Active Substance: AMLODIPINE BESYLATE
     Indication: BLOOD PRESSURE ABNORMAL
     Dosage: 0.5 MG (1 TABLET), 2X/DAY
     Route: 048
     Dates: start: 1995
  5. CHLORTHALIDONE. [Concomitant]
     Active Substance: CHLORTHALIDONE
     Indication: DIURETIC THERAPY
     Dosage: 25 MG (1 TABLET), DAILY
     Route: 048
     Dates: start: 1996

REACTIONS (2)
  - Condition aggravated [Not Recovered/Not Resolved]
  - Pituitary tumour [Not Recovered/Not Resolved]
